FAERS Safety Report 25735398 (Version 2)
Quarter: 2025Q3

REPORT INFORMATION
  Report Type: Spontaneous
  Country: EU (occurrence: EU)
  Receive Date: 20250828
  Receipt Date: 20250904
  Transmission Date: 20251021
  Serious: Yes (Other)
  Sender: MYLAN
  Company Number: EU-CHEPLA-2025009547

PATIENT
  Age: 45 Year
  Sex: Female

DRUGS (9)
  1. DOXORUBICIN [Suspect]
     Active Substance: DOXORUBICIN
     Indication: Adrenocortical carcinoma
  2. CISPLATIN [Suspect]
     Active Substance: CISPLATIN
     Indication: Adrenocortical carcinoma
  3. ETOPOSIDE [Suspect]
     Active Substance: ETOPOSIDE
     Indication: Adrenocortical carcinoma
  4. MITOTANE [Concomitant]
     Active Substance: MITOTANE
     Indication: Adrenocortical carcinoma
     Dosage: 1.5 GRAM, QD (DOSE OF 1.5 G/DAY)
  5. MITOTANE [Concomitant]
     Active Substance: MITOTANE
  6. MITOTANE [Concomitant]
     Active Substance: MITOTANE
     Dosage: 4 GRAM, QD
  7. CORTISONE ACETATE [Concomitant]
     Active Substance: CORTISONE ACETATE
     Indication: Adrenocortical carcinoma
     Dosage: 62.5 MILLIGRAM, QD
  8. METYRAPONE [Concomitant]
     Active Substance: METYRAPONE
     Indication: Adrenocortical carcinoma
  9. HEPARIN [Concomitant]
     Active Substance: HEPARIN SODIUM
     Indication: Pulmonary embolism

REACTIONS (2)
  - Acute kidney injury [Recovering/Resolving]
  - Off label use [Unknown]
